FAERS Safety Report 10168706 (Version 1)
Quarter: 2014Q2

REPORT INFORMATION
  Report Type: Spontaneous
  Country: KR (occurrence: None)
  Receive Date: 20140509
  Receipt Date: 20140509
  Transmission Date: 20141212
  Serious: Yes (Hospitalization)
  Sender: FDA-Public Use
  Company Number: KR-20140011

PATIENT
  Age: 69 Year
  Sex: Male

DRUGS (3)
  1. LIPIODOL ULTRA FLUIDE [Suspect]
     Indication: THERAPEUTIC EMBOLISATION
     Route: 013
  2. ADRIAMYCIN [Suspect]
     Indication: THERAPEUTIC EMBOLISATION
     Route: 013
  3. GELFOAM (ABSORBABLE GELATIN SPONGE) (ABSORBABLE GELATIN SPONGE) [Suspect]
     Indication: THERAPEUTIC EMBOLISATION
     Route: 013

REACTIONS (15)
  - Pancreatitis necrotising [None]
  - Pancreas infection [None]
  - Nausea [None]
  - Decreased appetite [None]
  - Abdominal pain [None]
  - Pyrexia [None]
  - Hepatic enzyme increased [None]
  - Post embolisation syndrome [None]
  - Off label use [None]
  - Aspartate aminotransferase increased [None]
  - Blood bilirubin increased [None]
  - Culture positive [None]
  - Staphylococcus test positive [None]
  - Klebsiella test positive [None]
  - Citrobacter test positive [None]
